FAERS Safety Report 5444111-0 (Version None)
Quarter: 2007Q3

REPORT INFORMATION
  Report Type: 
  Country: None (occurrence: None)
  Receive Date: 20070831
  Receipt Date: 20070817
  Transmission Date: 20080115
  Serious: Yes (Hospitalization)
  Sender: FDA-Public Use
  Company Number: S06-CAN-02556-01

PATIENT
  Age: 61 Year
  Sex: Female

DRUGS (3)
  1. TIAZAC [Suspect]
  2. CEFAZOLIN SODIUM [Concomitant]
  3. CEPHALEXIN [Concomitant]

REACTIONS (2)
  - CELLULITIS [None]
  - OEDEMA PERIPHERAL [None]
